FAERS Safety Report 8002861-6 (Version None)
Quarter: 2011Q4

REPORT INFORMATION
  Report Type: 
  Country: None (occurrence: None)
  Receive Date: 20111222
  Receipt Date: 20101225
  Transmission Date: 20120403
  Serious: No
  Sender: FDA-Public Use
  Company Number: US-GLAXOSMITHKLINE-A0901733A

PATIENT
  Age: 71 Year
  Sex: Male

DRUGS (2)
  1. FLOMAX [Suspect]
     Indication: PRODUCT USED FOR UNKNOWN INDICATION
     Route: 065
  2. AVODART [Suspect]
     Indication: PRODUCT USED FOR UNKNOWN INDICATION
     Route: 065

REACTIONS (3)
  - SEMEN VOLUME DECREASED [None]
  - RHINORRHOEA [None]
  - DRUG INTERACTION [None]
